FAERS Safety Report 10102040 (Version 1)
Quarter: 2014Q2

REPORT INFORMATION
  Report Type: Spontaneous
  Country: DE (occurrence: DE)
  Receive Date: 20140424
  Receipt Date: 20140424
  Transmission Date: 20141212
  Serious: Yes (Other)
  Sender: FDA-Public Use
  Company Number: PHHY2014DE049536

PATIENT
  Sex: Female

DRUGS (2)
  1. ZOMETA [Suspect]
     Indication: HYPERCALCAEMIA
     Dosage: 4 MG PER 5 ML
     Dates: start: 20140412
  2. ZOMETA [Suspect]
     Indication: OFF LABEL USE

REACTIONS (3)
  - Osteonecrosis of jaw [Unknown]
  - Anaemia [Unknown]
  - Haemoglobin decreased [Unknown]
